FAERS Safety Report 10764335 (Version 9)
Quarter: 2018Q4

REPORT INFORMATION
  Report Type: Report from Study
  Country: CA (occurrence: CA)
  Receive Date: 20150205
  Receipt Date: 20181015
  Transmission Date: 20190204
  Serious: Yes (Other)
  Sender: FDA-Public Use
  Company Number: CA-ROCHE-1528148

PATIENT
  Age: 63 Year
  Sex: Female
  Weight: 63.5 kg

DRUGS (15)
  1. PREDNISONE. [Suspect]
     Active Substance: PREDNISONE
     Indication: PEMPHIGUS
     Route: 065
  2. DIPHENHYDRAMINE HCL [Concomitant]
     Active Substance: DIPHENHYDRAMINE HYDROCHLORIDE
     Indication: PREMEDICATION
     Route: 048
     Dates: start: 20101013
  3. MINOXIDIL. [Concomitant]
     Active Substance: MINOXIDIL
  4. CRESTOR [Concomitant]
     Active Substance: ROSUVASTATIN CALCIUM
  5. ARAVA [Suspect]
     Active Substance: LEFLUNOMIDE
     Indication: PEMPHIGUS
     Route: 065
  6. IMURAN [Suspect]
     Active Substance: AZATHIOPRINE
     Indication: PEMPHIGUS
     Route: 065
  7. TECTA [Concomitant]
     Active Substance: PANTOPRAZOLE MAGNESIUM
  8. ACETAMINOPHEN. [Concomitant]
     Active Substance: ACETAMINOPHEN
     Indication: PREMEDICATION
     Route: 048
     Dates: start: 20101013
  9. OMEPRAZOLE. [Concomitant]
     Active Substance: OMEPRAZOLE
  10. RITUXAN [Suspect]
     Active Substance: RITUXIMAB
     Indication: PEMPHIGUS
     Dosage: LAST RITUXIMAB INFUSION: 26/OCT/2011.
     Route: 042
     Dates: start: 20100928
  11. LEFLUNOMIDE. [Concomitant]
     Active Substance: LEFLUNOMIDE
     Dosage: FOR 9 MONTHS
     Route: 065
  12. ALENDRONATE [Concomitant]
     Active Substance: ALENDRONATE SODIUM
  13. CELLCEPT [Suspect]
     Active Substance: MYCOPHENOLATE MOFETIL\MYCOPHENOLATE MOFETIL HYDROCHLORIDE
     Indication: PEMPHIGUS
     Route: 048
  14. METHYLPREDNISOLONE. [Concomitant]
     Active Substance: METHYLPREDNISOLONE
     Indication: PREMEDICATION
     Route: 042
     Dates: start: 20101013
  15. SYNTHROID [Concomitant]
     Active Substance: LEVOTHYROXINE SODIUM

REACTIONS (13)
  - Hepatitis [Unknown]
  - Blood cholesterol increased [Unknown]
  - Ill-defined disorder [Unknown]
  - Condition aggravated [Not Recovered/Not Resolved]
  - Off label use [Unknown]
  - Pemphigus [Unknown]
  - Hypothyroidism [Unknown]
  - Heart rate irregular [Unknown]
  - Weight increased [Not Recovered/Not Resolved]
  - Pemphigus [Not Recovered/Not Resolved]
  - Alopecia [Unknown]
  - Oral disorder [Unknown]
  - Bronchitis [Recovering/Resolving]

NARRATIVE: CASE EVENT DATE: 2014
